FAERS Safety Report 7867018-8 (Version None)
Quarter: 2011Q4

REPORT INFORMATION
  Report Type: 
  Country: None (occurrence: None)
  Receive Date: 20111028
  Receipt Date: 20111013
  Transmission Date: 20120403
  Serious: Yes (Hospitalization)
  Sender: FDA-Public Use
  Company Number: BE-ROCHE-1001251

PATIENT
  Age: 70 Year
  Sex: Female
  Weight: 43.2 kg

DRUGS (7)
  1. PANTOMED (PANTOPRAZOLE) [Concomitant]
     Indication: PROPHYLAXIS AGAINST GASTROINTESTINAL ULCER
     Route: 048
  2. BISOPROLOL [Concomitant]
     Indication: TACHYCARDIA
     Route: 048
     Dates: start: 20110713
  3. ZOFRAN [Concomitant]
     Indication: NAUSEA
     Route: 048
     Dates: start: 20110727
  4. AVASTIN [Suspect]
     Dosage: BEVACIZUMAB REINTRODUCED
  5. AVASTIN [Suspect]
     Indication: COLORECTAL CANCER METASTATIC
     Dates: start: 20110627, end: 20110713
  6. LITICAN [Concomitant]
     Indication: NAUSEA
     Route: 048
     Dates: start: 20110727
  7. LORAZEPAM [Concomitant]
     Route: 048

REACTIONS (1)
  - BILE DUCT STONE [None]
